FAERS Safety Report 14283859 (Version 3)
Quarter: 2018Q1

REPORT INFORMATION
  Report Type: Spontaneous
  Country: JP (occurrence: JP)
  Receive Date: 20171214
  Receipt Date: 20180102
  Transmission Date: 20180509
  Serious: Yes (Hospitalization)
  Sender: FDA-Public Use
  Company Number: PHJP2017JP035706

PATIENT
  Age: 58 Year
  Sex: Female

DRUGS (2)
  1. ALENDRONATE SODIUM HYDRATE [Suspect]
     Active Substance: ALENDRONATE SODIUM
     Indication: METASTASES TO BONE
     Dosage: UNK
     Route: 041
  2. ZOMETA [Suspect]
     Active Substance: ZOLEDRONIC ACID
     Indication: METASTASES TO BONE
     Dosage: 4 MG, UNK
     Route: 041

REACTIONS (6)
  - Pain in jaw [Unknown]
  - Pain in jaw [Recovered/Resolved]
  - Exposed bone in jaw [Unknown]
  - Tooth infection [Recovered/Resolved]
  - Osteonecrosis of jaw [Recovered/Resolved]
  - Secondary sequestrum [Unknown]
